FAERS Safety Report 7085236-6 (Version None)
Quarter: 2010Q4

REPORT INFORMATION
  Report Type: 
  Country: None (occurrence: None)
  Receive Date: 20101105
  Receipt Date: 20101021
  Transmission Date: 20110411
  Serious: Yes (Hospitalization, Other)
  Sender: FDA-Public Use
  Company Number: US-AMGEN-USASP2010001230

PATIENT

DRUGS (1)
  1. SENSIPAR [Suspect]

REACTIONS (1)
  - HOSPITALISATION [None]
